FAERS Safety Report 5987796-2 (Version None)
Quarter: 2008Q4

REPORT INFORMATION
  Report Type: 
  Country: None (occurrence: None)
  Receive Date: 20081209
  Receipt Date: 20080909
  Transmission Date: 20090506
  Serious: No
  Sender: FDA-Public Use
  Company Number: US-BAYER-200813349NA

PATIENT
  Sex: Female
  Weight: 86 kg

DRUGS (7)
  1. CLIMARA PRO [Suspect]
     Indication: MENOPAUSAL SYMPTOMS
     Route: 062
     Dates: start: 20070101
  2. LEVOXYL [Concomitant]
  3. BIAXIN [Concomitant]
  4. KLONOPIN [Concomitant]
  5. ATENOLOL [Concomitant]
  6. ZYRTEC [Concomitant]
  7. DESIPRAMINE HCL [Concomitant]

REACTIONS (4)
  - APPLICATION SITE DISCOLOURATION [None]
  - APPLICATION SITE REACTION [None]
  - APPLICATION SITE URTICARIA [None]
  - SKIN EXFOLIATION [None]
